FAERS Safety Report 7195361-7 (Version None)
Quarter: 2010Q4

REPORT INFORMATION
  Report Type: 
  Country: None (occurrence: None)
  Receive Date: 20101223
  Receipt Date: 20100930
  Transmission Date: 20110411
  Serious: No
  Sender: FDA-Public Use
  Company Number: US-AMGEN-KDL441222

PATIENT

DRUGS (3)
  1. ENBREL [Suspect]
     Indication: PSORIASIS
     Dosage: 50 MG, 2 TIMES/WK
     Route: 058
     Dates: start: 20070301
  2. ENBREL [Suspect]
     Dosage: 50 MG, 2 TIMES/WK
     Dates: start: 20100801
  3. BETAMETHASONE DIPROPIONATE [Concomitant]
     Dosage: UNK UNK, BID

REACTIONS (3)
  - NASOPHARYNGITIS [None]
  - OROPHARYNGEAL PAIN [None]
  - RESPIRATORY TRACT CONGESTION [None]
